FAERS Safety Report 5443400-3 (Version None)
Quarter: 2007Q3

REPORT INFORMATION
  Report Type: 
  Country: None (occurrence: None)
  Receive Date: 20070905
  Receipt Date: 20070821
  Transmission Date: 20080115
  Serious: Yes (Hospitalization)
  Sender: FDA-Public Use
  Company Number: B0482683A

PATIENT
  Age: 33 Year
  Sex: Female

DRUGS (3)
  1. LAMOTRIGINE [Suspect]
     Indication: BIPOLAR DISORDER
     Dosage: 25MG PER DAY
     Route: 065
  2. LITHIUM CARBONATE [Concomitant]
     Dosage: 600MG PER DAY
     Route: 065
  3. OLANZAPINE [Concomitant]
     Dosage: 5MG PER DAY
     Route: 065

REACTIONS (20)
  - ALANINE AMINOTRANSFERASE INCREASED [None]
  - ASPARTATE AMINOTRANSFERASE INCREASED [None]
  - CHILLS [None]
  - CONJUNCTIVITIS INFECTIVE [None]
  - DIARRHOEA [None]
  - DRUG RASH WITH EOSINOPHILIA AND SYSTEMIC SYMPTOMS [None]
  - FACE OEDEMA [None]
  - HAEMOGLOBIN DECREASED [None]
  - HEADACHE [None]
  - HEART RATE INCREASED [None]
  - HEPATIC FUNCTION ABNORMAL [None]
  - LEUKOPENIA [None]
  - LYMPHADENOPATHY [None]
  - MENINGISM [None]
  - MENINGITIS [None]
  - MUSCULOSKELETAL STIFFNESS [None]
  - PLATELET COUNT DECREASED [None]
  - PLEOCYTOSIS [None]
  - PYREXIA [None]
  - RASH MACULO-PAPULAR [None]
